FAERS Safety Report 7648350-X (Version None)
Quarter: 2011Q3

REPORT INFORMATION
  Report Type: 
  Country: None (occurrence: None)
  Receive Date: 20110801
  Receipt Date: 20110720
  Transmission Date: 20111222
  Serious: Yes (Hospitalization)
  Sender: FDA-Public Use
  Company Number: US-PFIZER INC-2011164691

PATIENT
  Sex: Female
  Weight: 63.039 kg

DRUGS (2)
  1. AMLODIPINE AND ATORVASTATIN [Suspect]
     Dosage: UNK
     Dates: start: 20080808, end: 20110201
  2. PALMAZ GENESIS [Suspect]
     Dosage: UNK
     Dates: start: 20080808

REACTIONS (2)
  - MYOCARDIAL INFARCTION [None]
  - CORONARY ARTERY STENOSIS [None]
